FAERS Safety Report 18624236 (Version 1)
Quarter: 2020Q4

REPORT INFORMATION
  Report Type: Spontaneous
  Country: AE (occurrence: AE)
  Receive Date: 20201216
  Receipt Date: 20201216
  Transmission Date: 20210114
  Serious: Yes (Hospitalization, Other)
  Sender: FDA-Public Use
  Company Number: NVSC2020AE334082

PATIENT
  Age: 26 Year
  Sex: Female

DRUGS (2)
  1. CELECOXIB. [Suspect]
     Active Substance: CELECOXIB
     Indication: BACK PAIN
     Dosage: UNK
     Route: 065
  2. DICLOFENAC [Suspect]
     Active Substance: DICLOFENAC
     Indication: BACK PAIN
     Dosage: UNK
     Route: 065

REACTIONS (9)
  - Abdominal pain upper [Recovered/Resolved]
  - Peritonitis [Recovered/Resolved]
  - Tenderness [Recovered/Resolved]
  - Nausea [Recovered/Resolved]
  - Abdominal tenderness [Recovered/Resolved]
  - Diarrhoea [Recovered/Resolved]
  - Gastric ulcer perforation [Recovered/Resolved]
  - Gastrointestinal necrosis [Recovered/Resolved]
  - Ischaemic skin ulcer [Recovered/Resolved]
